FAERS Safety Report 8389228-6 (Version None)
Quarter: 2012Q2

REPORT INFORMATION
  Report Type: 
  Country: None (occurrence: None)
  Receive Date: 20120528
  Receipt Date: 20120523
  Transmission Date: 20120825
  Serious: Yes (Life-Threatening, Hospitalization)
  Sender: FDA-Public Use
  Company Number: PHHY2011FR33127

PATIENT
  Sex: Male
  Weight: 92 kg

DRUGS (14)
  1. FLUDROCORTISONE ACETATE [Concomitant]
     Dosage: 50 MG, QD
  2. FENOFIBRATE [Concomitant]
     Dosage: 145 MG, QD
  3. ESOMEPRAZOLE MAGNESIUM [Concomitant]
     Dosage: 20 MG, QD
  4. LEXOMIL [Concomitant]
     Dosage: 0.5 DF, QD
  5. ACTOS [Concomitant]
     Dosage: 30 MG, QD
  6. REPAGLINIDE [Concomitant]
     Dosage: 4 MG, TID
  7. VALSARTAN [Concomitant]
     Dosage: 160 MG, QD
  8. XANAX [Concomitant]
     Dosage: 0.5 DF, BID
  9. ARANESP [Concomitant]
  10. EVEROLIMUS [Suspect]
     Indication: RENAL CANCER
     Dosage: 10 MG, DAILY
     Route: 048
     Dates: start: 20110419, end: 20110429
  11. LEVOTHYROXINE SODIUM [Concomitant]
     Dosage: 100 MG, QD
  12. LANTUS [Concomitant]
     Dosage: 22 IU, QID
     Dates: start: 20080101
  13. HYDROCORTISONE [Concomitant]
     Dosage: 20 MG, DAILY
  14. CREON [Concomitant]

REACTIONS (17)
  - LUNG DISORDER [None]
  - HYPOCALCAEMIA [None]
  - GLOMERULAR FILTRATION RATE DECREASED [None]
  - HYPERGLYCAEMIA [None]
  - ADRENAL INSUFFICIENCY [None]
  - HAEMODYNAMIC INSTABILITY [None]
  - BLOOD PHOSPHORUS DECREASED [None]
  - HYPOKALAEMIA [None]
  - ASTHENIA [None]
  - BONE PAIN [None]
  - BLOOD LACTATE DEHYDROGENASE INCREASED [None]
  - ALPHA HAEMOLYTIC STREPTOCOCCAL INFECTION [None]
  - OEDEMA [None]
  - SEPTIC SHOCK [None]
  - STAPHYLOCOCCAL INFECTION [None]
  - GLYCOSYLATED HAEMOGLOBIN INCREASED [None]
  - HAEMOGLOBIN DECREASED [None]
